FAERS Safety Report 21463328 (Version 2)
Quarter: 2022Q4

REPORT INFORMATION
  Report Type: Report from Study
  Country: IT (occurrence: IT)
  Receive Date: 20221017
  Receipt Date: 20221020
  Transmission Date: 20230112
  Serious: Yes (Death, Other)
  Sender: FDA-Public Use
  Company Number: IT-NOVARTISPH-NVSC2022IT232406

PATIENT
  Sex: Male
  Weight: 73.7 kg

DRUGS (1)
  1. PIQRAY [Suspect]
     Active Substance: ALPELISIB
     Indication: Salivary gland cancer
     Dosage: 300 MG, QD
     Route: 048
     Dates: start: 20220915

REACTIONS (3)
  - Acute respiratory distress syndrome [Fatal]
  - Lung infiltration [Unknown]
  - Malignant neoplasm progression [Unknown]
